FAERS Safety Report 5102391-5 (Version None)
Quarter: 2006Q3

REPORT INFORMATION
  Report Type: 
  Country: None (occurrence: None)
  Receive Date: 20060912
  Receipt Date: 20060616
  Transmission Date: 20061208
  Serious: Yes (Hospitalization)
  Sender: FDA-Public Use
  Company Number: FR-AVENTIS-200612185FR

PATIENT
  Age: 68 Year
  Sex: Female

DRUGS (3)
  1. TAVANIC [Suspect]
     Indication: SIGMOIDITIS
     Route: 048
     Dates: start: 20060514, end: 20060525
  2. FLAGYL ^AVENTIS^ [Suspect]
     Indication: SIGMOIDITIS
     Route: 048
     Dates: start: 20060514, end: 20060615
  3. COTAREG [Concomitant]
     Route: 048

REACTIONS (2)
  - PRURITUS [None]
  - RASH MACULO-PAPULAR [None]
